FAERS Safety Report 8960664 (Version 2)
Quarter: 2013Q1

REPORT INFORMATION
  Report Type: Spontaneous
  Country: US (occurrence: US)
  Receive Date: 20121213
  Receipt Date: 20130122
  Transmission Date: 20140127
  Serious: No
  Sender: FDA-Public Use
  Company Number: US-009507513-1212USA004501

PATIENT
  Sex: Female

DRUGS (1)
  1. NEXPLANON [Suspect]
     Dosage: UNK

REACTIONS (3)
  - Device difficult to use [Unknown]
  - No adverse event [Unknown]
  - Product quality issue [Unknown]
